FAERS Safety Report 9387326 (Version 3)
Quarter: 2014Q2

REPORT INFORMATION
  Report Type: Report from Study
  Country: DE (occurrence: DE)
  Receive Date: 20130708
  Receipt Date: 20140616
  Transmission Date: 20141212
  Serious: Yes (Hospitalization)
  Sender: FDA-Public Use
  Company Number: DE-BAYER-2013-043113

PATIENT
  Age: 41 Year
  Sex: Female
  Weight: 76.19 kg

DRUGS (3)
  1. SORAFENIB (RAF KINASE INHIBITOR) [Suspect]
     Indication: INTRAOCULAR MELANOMA
     Dosage: 800 MG, DAILY
     Route: 048
     Dates: start: 20130129
  2. SORAFENIB (RAF KINASE INHIBITOR) [Suspect]
     Indication: METASTASES TO LIVER
  3. BLINDED SORAFENIB (RAF KINASE INHIBITOR) [Suspect]

REACTIONS (3)
  - Abdominal discomfort [Recovering/Resolving]
  - Diverticulitis [Recovering/Resolving]
  - Diarrhoea [Recovering/Resolving]
